FAERS Safety Report 24617195 (Version 1)
Quarter: 2024Q4

REPORT INFORMATION
  Report Type: Spontaneous
  Country: CN (occurrence: CN)
  Receive Date: 20241114
  Receipt Date: 20241114
  Transmission Date: 20250115
  Serious: Yes (Other)
  Sender: BAXTER
  Company Number: None

PATIENT
  Age: 62 Year
  Sex: Female
  Weight: 44 kg

DRUGS (2)
  1. CYCLOPHOSPHAMIDE [Suspect]
     Active Substance: CYCLOPHOSPHAMIDE
     Indication: Chemotherapy
     Dosage: (DOSAGE FORM: INJECTION) 0.7 G CYCLOPHOSPHAMIDE FOR INJECTION DILUTED WITH 500 ML OF 0.9% SODIUM CHL
     Route: 041
     Dates: start: 20241008, end: 20241008
  2. SODIUM CHLORIDE [Suspect]
     Active Substance: SODIUM CHLORIDE
     Indication: Medication dilution
     Dosage: (DOSAGE FORM: INJECTION) 500 ML OF 0.9% SODIUM CHLORIDE INJECTION USED TO DILUTE 0.7 G CYCLOPHOSPHAM
     Route: 041
     Dates: start: 20241008, end: 20241008

REACTIONS (4)
  - Drug-induced liver injury [Unknown]
  - Hepatic function abnormal [Unknown]
  - Alanine aminotransferase increased [Unknown]
  - Aspartate aminotransferase increased [Unknown]

NARRATIVE: CASE EVENT DATE: 20241013
